FAERS Safety Report 9394803 (Version 1)
Quarter: 2013Q3

REPORT INFORMATION
  Report Type: Report from Study
  Country: US (occurrence: US)
  Receive Date: 20130711
  Receipt Date: 20130711
  Transmission Date: 20140515
  Serious: Yes (Other)
  Sender: FDA-Public Use
  Company Number: US-ROCHE-1245574

PATIENT
  Sex: Female

DRUGS (2)
  1. KADCYLA [Suspect]
     Indication: BREAST CANCER
     Route: 042
  2. XGEVA [Concomitant]
     Route: 058

REACTIONS (4)
  - Metastases to central nervous system [Unknown]
  - Metastases to bone marrow [Unknown]
  - Metastases to adrenals [Unknown]
  - Metastases to spine [Unknown]
